FAERS Safety Report 7972684-2 (Version None)
Quarter: 2011Q4

REPORT INFORMATION
  Report Type: 
  Country: None (occurrence: None)
  Receive Date: 20111122
  Receipt Date: 20110714
  Transmission Date: 20120403
  Serious: No
  Sender: FDA-Public Use
  Company Number: PHHY2011US45575

PATIENT
  Age: 39 Year
  Sex: Female

DRUGS (6)
  1. EFFEXOR [Concomitant]
  2. VESICARE [Concomitant]
  3. SKELAXIN [Concomitant]
  4. LAMICTAL [Concomitant]
  5. GILENYA [Suspect]
     Indication: MULTIPLE SCLEROSIS
     Dosage: 0.5 MG, QD, ORAL
     Route: 048
     Dates: start: 20110422, end: 20110623
  6. SEROQUEL [Concomitant]

REACTIONS (3)
  - DRUG INTOLERANCE [None]
  - PALPITATIONS [None]
  - ALOPECIA [None]
